FAERS Safety Report 25034923 (Version 2)
Quarter: 2025Q1

REPORT INFORMATION
  Report Type: Spontaneous
  Country: ZA (occurrence: ZA)
  Receive Date: 20250304
  Receipt Date: 20250318
  Transmission Date: 20250409
  Serious: Yes (Hospitalization, Other)
  Sender: Norvium Bioscience
  Company Number: ZA-Norvium Bioscience LLC-079925

PATIENT
  Sex: Female

DRUGS (3)
  1. AMLODIPINE BESYLATE [Suspect]
     Active Substance: AMLODIPINE BESYLATE
     Indication: Suicide attempt
     Route: 048
  2. ACETAMINOPHEN [Concomitant]
     Active Substance: ACETAMINOPHEN
     Indication: Suicide attempt
     Route: 048
  3. ASPIRIN [Concomitant]
     Active Substance: ASPIRIN
     Indication: Suicide attempt
     Route: 048

REACTIONS (3)
  - Overdose [Unknown]
  - Non-cardiogenic pulmonary oedema [Recovered/Resolved]
  - Hypocalcaemia [Recovered/Resolved]
